FAERS Safety Report 8263172-7 (Version None)
Quarter: 2012Q2

REPORT INFORMATION
  Report Type: 
  Country: None (occurrence: None)
  Receive Date: 20120405
  Receipt Date: 20120330
  Transmission Date: 20120825
  Serious: Yes (Other)
  Sender: FDA-Public Use
  Company Number: DE-B.I. PHARMACEUTICALS,INC./RIDGEFIELD-2012-DE-00920DE

PATIENT
  Age: 82 Year
  Sex: Male
  Weight: 100 kg

DRUGS (13)
  1. TAMSULOSIN HEXAL [Concomitant]
  2. PANTOPRAZOLE [Concomitant]
  3. PRADAXA [Suspect]
     Indication: ATRIAL FIBRILLATION
     Dosage: 150 MG
     Dates: start: 20120201
  4. PRADAXA [Suspect]
     Dosage: 220 MG
     Dates: start: 20110801, end: 20120201
  5. ALLOPURINOL [Concomitant]
  6. TRIAMTEREN HCT [Concomitant]
  7. LACTULOSE [Concomitant]
  8. SYMBICORT [Concomitant]
  9. LYRICA [Concomitant]
  10. MIKTONORM UNO [Concomitant]
  11. SIMVASTATIN RATIOPHARM [Concomitant]
  12. VERAPAMIL [Concomitant]
  13. ROPINIROL STADA [Concomitant]
     Indication: RESTLESS LEGS SYNDROME

REACTIONS (1)
  - CEREBROVASCULAR ACCIDENT [None]
